FAERS Safety Report 7049909-3 (Version None)
Quarter: 2010Q4

REPORT INFORMATION
  Report Type: 
  Country: None (occurrence: None)
  Receive Date: 20101013
  Receipt Date: 20100927
  Transmission Date: 20110411
  Serious: Yes (Other)
  Sender: FDA-Public Use
  Company Number: 011179

PATIENT
  Age: 3 Year
  Sex: Female

DRUGS (10)
  1. BUSULFEX [Suspect]
     Indication: BONE MARROW CONDITIONING REGIMEN
     Dosage: 14 MG, Q6HR, INTRAVENOUS
     Route: 042
  2. MELPHALAN HYDROCHLORIDE [Concomitant]
  3. ANTI-THYMOCYTE GLOBULIN NOS [Concomitant]
  4. HEPARIN [Concomitant]
  5. CYCLOSPORINE [Concomitant]
  6. IMMUNOGLOBULIN G HUMAN (IMMUNOGLOBULIN G HUMAN) [Concomitant]
  7. VORICONAZOLE [Concomitant]
  8. ACYCLOVIR [Concomitant]
  9. BACTRIM [Concomitant]
  10. PENTAMIDINE (PENTAMIDINE) [Concomitant]

REACTIONS (1)
  - LEUKAEMIA RECURRENT [None]
